FAERS Safety Report 21327960 (Version 2)
Quarter: 2022Q3

REPORT INFORMATION
  Report Type: Report from Study
  Country: US (occurrence: US)
  Receive Date: 20220913
  Receipt Date: 20220914
  Transmission Date: 20221027
  Serious: Yes (Other)
  Sender: FDA-Public Use
  Company Number: US-JAZZ-2022-US-021369

PATIENT
  Sex: Male

DRUGS (7)
  1. XYWAV [Suspect]
     Active Substance: CALCIUM OXYBATE\MAGNESIUM OXYBATE\POTASSIUM OXYBATE\SODIUM OXYBATE
     Indication: Narcolepsy
     Dosage: UNK
     Dates: start: 202110
  2. XYWAV [Suspect]
     Active Substance: CALCIUM OXYBATE\MAGNESIUM OXYBATE\POTASSIUM OXYBATE\SODIUM OXYBATE
     Indication: Cataplexy
  3. XYWAV [Suspect]
     Active Substance: CALCIUM OXYBATE\MAGNESIUM OXYBATE\POTASSIUM OXYBATE\SODIUM OXYBATE
     Indication: Somnolence
  4. LIDOCAINE [Concomitant]
     Active Substance: LIDOCAINE
     Dosage: UNK
     Dates: start: 20210901
  5. SUNOSI [Concomitant]
     Active Substance: SOLRIAMFETOL
     Dosage: UNK
     Dates: start: 20220820
  6. VALSARTAN [Concomitant]
     Active Substance: VALSARTAN
     Dosage: 0000
     Dates: start: 20220621
  7. DOCUSATE SODIUM [Concomitant]
     Active Substance: DOCUSATE SODIUM
     Dosage: UNK
     Dates: start: 20220616

REACTIONS (5)
  - Hyperkalaemia [Unknown]
  - Blood sodium decreased [Unknown]
  - White blood cell count increased [Unknown]
  - Blood chloride decreased [Unknown]
  - Chronic obstructive pulmonary disease [Unknown]
